FAERS Safety Report 9819305 (Version 1)
Quarter: 2014Q1

REPORT INFORMATION
  Report Type: Spontaneous
  Country: US (occurrence: None)
  Receive Date: 20140113
  Receipt Date: 20140113
  Transmission Date: 20141002
  Serious: Yes (Other)
  Sender: FDA-Public Use
  Company Number: CN-JNJFOC-20140101549

PATIENT
  Age: 45 Year
  Sex: 0

DRUGS (1)
  1. DECITABINE [Suspect]
     Indication: MYELODYSPLASTIC SYNDROME
     Route: 042

REACTIONS (5)
  - Haematotoxicity [None]
  - Stem cell transplant [None]
  - Pneumonia [None]
  - Myelodysplastic syndrome [None]
  - Recurrent cancer [None]
